FAERS Safety Report 14590602 (Version 1)
Quarter: 2018Q1

REPORT INFORMATION
  Report Type: Spontaneous
  Country: US (occurrence: US)
  Receive Date: 20180301
  Receipt Date: 20180301
  Transmission Date: 20180509
  Serious: Yes (Life-Threatening, Disabling, Other)
  Sender: FDA-Public Use
  Company Number: None

PATIENT
  Age: 27 Year
  Sex: Female
  Weight: 108 kg

DRUGS (22)
  1. AZELASTINE. [Concomitant]
     Active Substance: AZELASTINE HYDROCHLORIDE
  2. XANAX [Concomitant]
     Active Substance: ALPRAZOLAM
  3. TRAMADOL. [Concomitant]
     Active Substance: TRAMADOL
  4. REGLAN [Concomitant]
     Active Substance: METOCLOPRAMIDE HYDROCHLORIDE
  5. ALLEGRA [Concomitant]
     Active Substance: FEXOFENADINE HYDROCHLORIDE
  6. DIET-FREE TYLENOL [Concomitant]
  7. CLARITIN 24 HOUR RELIEF [Concomitant]
  8. DOXAZOSIN MESYLATE. [Suspect]
     Active Substance: DOXAZOSIN MESYLATE
     Indication: URINARY RETENTION
     Dosage: ?          QUANTITY:1 TABLET(S);?
     Route: 048
     Dates: start: 20180228, end: 20180301
  9. FLONASE 5HTP [Concomitant]
  10. NYASTATIN [Concomitant]
  11. DIET-FREE CHILDREN^S BENADRYL [Concomitant]
  12. B12 INJECTIONS [Concomitant]
  13. SINGULAIR [Concomitant]
     Active Substance: MONTELUKAST SODIUM
  14. EPIPEN [Concomitant]
     Active Substance: EPINEPHRINE
  15. ZANTAC [Concomitant]
     Active Substance: RANITIDINE HYDROCHLORIDE
  16. DEPLIN [Concomitant]
     Active Substance: LEVOMEFOLATE CALCIUM
  17. HUMALIN KWIK PEN [Concomitant]
  18. TORADOL [Concomitant]
     Active Substance: KETOROLAC TROMETHAMINE
  19. ADDERALL [Concomitant]
     Active Substance: AMPHETAMINE ASPARTATE\AMPHETAMINE SULFATE\DEXTROAMPHETAMINE SACCHARATE\DEXTROAMPHETAMINE SULFATE
  20. PREDNISONE. [Concomitant]
     Active Substance: PREDNISONE
  21. NORA-B [Concomitant]
  22. ROBAXIN [Concomitant]
     Active Substance: METHOCARBAMOL

REACTIONS (1)
  - Blood glucose increased [None]

NARRATIVE: CASE EVENT DATE: 20180228
